FAERS Safety Report 12937652 (Version 1)
Quarter: 2016Q4

REPORT INFORMATION
  Report Type: Spontaneous
  Country: GB (occurrence: GB)
  Receive Date: 20161114
  Receipt Date: 20161114
  Transmission Date: 20170207
  Serious: Yes (Other)
  Sender: FDA-Public Use
  Company Number: GB-GALDERMA-GB16007568

PATIENT
  Age: 28 Year
  Sex: Female
  Weight: 59 kg

DRUGS (13)
  1. FERROUS SULFATE. [Concomitant]
     Active Substance: FERROUS SULFATE
     Dates: start: 20160711, end: 20160831
  2. HYOSCINE BUTYLBROMIDE [Concomitant]
     Active Substance: BUTYLSCOPOLAMINE
     Dates: start: 20160706
  3. LAMOTRIGINE. [Concomitant]
     Active Substance: LAMOTRIGINE
     Dates: start: 20160706
  4. METRONIDAZOLE. [Suspect]
     Active Substance: METRONIDAZOLE
     Dates: start: 20161007
  5. MORPHINE SULFATE. [Concomitant]
     Active Substance: MORPHINE SULFATE
     Dates: start: 20161017
  6. CO-AMOXICLAV [Concomitant]
     Active Substance: AMOXICILLIN\CLAVULANIC ACID
     Dates: start: 20161001, end: 20161008
  7. BETAHISTINE [Concomitant]
     Active Substance: BETAHISTINE
     Dates: start: 20160706
  8. CEFALEXIN [Concomitant]
     Active Substance: CEPHALEXIN
     Dates: start: 20160930, end: 20161007
  9. NAPROXEN. [Concomitant]
     Active Substance: NAPROXEN
     Dates: start: 20161021
  10. PICOLAX [Concomitant]
     Active Substance: CITRIC ACID MONOHYDRATE\MAGNESIUM OXIDE\SODIUM PICOSULFATE
     Dates: start: 20160706
  11. PREGABALIN. [Concomitant]
     Active Substance: PREGABALIN
     Dates: start: 20160706
  12. CLOTRIMAZOLE. [Concomitant]
     Active Substance: CLOTRIMAZOLE
     Dates: start: 20161007, end: 20161008
  13. CINCHOCAINE [Concomitant]
     Dates: start: 20160930, end: 20161007

REACTIONS (2)
  - Partial seizures [Recovered/Resolved]
  - Condition aggravated [Recovered/Resolved]

NARRATIVE: CASE EVENT DATE: 20161025
